FAERS Safety Report 15659977 (Version 2)
Quarter: 2018Q4

REPORT INFORMATION
  Report Type: Report from Study
  Country: US (occurrence: US)
  Receive Date: 20181127
  Receipt Date: 20181220
  Transmission Date: 20190205
  Serious: No
  Sender: FDA-Public Use
  Company Number: US-JAZZ-2018-US-015805

PATIENT
  Sex: Female

DRUGS (2)
  1. XYREM [Suspect]
     Active Substance: SODIUM OXYBATE
     Indication: CATAPLEXY
  2. XYREM [Suspect]
     Active Substance: SODIUM OXYBATE
     Indication: NARCOLEPSY
     Dosage: 2.25 G, BID
     Route: 048
     Dates: start: 201810, end: 2018

REACTIONS (4)
  - Incontinence [Unknown]
  - Headache [Not Recovered/Not Resolved]
  - Blood pressure increased [Unknown]
  - Limb discomfort [Recovered/Resolved]

NARRATIVE: CASE EVENT DATE: 2018
